FAERS Safety Report 17656180 (Version 1)
Quarter: 2020Q2

REPORT INFORMATION
  Report Type: Spontaneous
  Country: US (occurrence: US)
  Receive Date: 20200410
  Receipt Date: 20200410
  Transmission Date: 20200713
  Serious: No
  Sender: FDA-Public Use
  Company Number: US-PERRIGO-19US003586

PATIENT
  Age: 83 Year
  Sex: Female
  Weight: 63 kg

DRUGS (2)
  1. ACETAMINOPHEN. [Suspect]
     Active Substance: ACETAMINOPHEN
     Indication: ARTHRALGIA
     Dosage: 1300 MG QD AND 650 MG BID; 650 MG, PRN
     Route: 048
  2. GABAPENTIN. [Concomitant]
     Active Substance: GABAPENTIN
     Indication: NEUROPATHY PERIPHERAL
     Dosage: 300 MG
     Route: 065
     Dates: start: 2018

REACTIONS (3)
  - Incorrect product administration duration [Unknown]
  - Expired product administered [Unknown]
  - Underdose [Unknown]

NARRATIVE: CASE EVENT DATE: 20180901
